FAERS Safety Report 12369404 (Version 2)
Quarter: 2016Q2

REPORT INFORMATION
  Report Type: Spontaneous
  Country: ZA (occurrence: ZA)
  Receive Date: 20160513
  Receipt Date: 20160616
  Transmission Date: 20160815
  Serious: Yes (Other)
  Sender: FDA-Public Use
  Company Number: ZA-009507513-1605ZAF004538

PATIENT
  Age: 18 Year
  Sex: Female

DRUGS (1)
  1. CELESTONE SOLUSPAN [Suspect]
     Active Substance: BETAMETHASONE ACETATE\BETAMETHASONE SODIUM PHOSPHATE
     Indication: HYPERSENSITIVITY
     Dosage: UNK
     Dates: start: 201601

REACTIONS (1)
  - Necrosis [Unknown]

NARRATIVE: CASE EVENT DATE: 2016
